FAERS Safety Report 13996797 (Version 5)
Quarter: 2022Q1

REPORT INFORMATION
  Report Type: Spontaneous
  Country: US (occurrence: US)
  Receive Date: 20170921
  Receipt Date: 20220119
  Transmission Date: 20220423
  Serious: No
  Sender: FDA-Public Use
  Company Number: US-PFIZER INC-2017404585

PATIENT
  Age: 66 Year
  Sex: Female
  Weight: 72 kg

DRUGS (15)
  1. LYRICA [Suspect]
     Active Substance: PREGABALIN
     Indication: Neuralgia
     Dosage: 50 MG, UNK
     Dates: start: 201610
  2. LYRICA [Suspect]
     Active Substance: PREGABALIN
     Indication: Nipple pain
     Dosage: 75 MG, 3X/DAY
  3. LYRICA [Suspect]
     Active Substance: PREGABALIN
     Indication: Muscular weakness
     Dosage: 50 MG, 3X/DAY
     Dates: start: 201704
  4. LYRICA [Suspect]
     Active Substance: PREGABALIN
     Dosage: 75 MG, 1X/DAY
  5. LYRICA [Suspect]
     Active Substance: PREGABALIN
     Dosage: 50 MG, 2X/DAY
  6. LYRICA [Suspect]
     Active Substance: PREGABALIN
     Dosage: 125 MG, DAILY (75MG CAPSULE BY MOUTH IN THE MORNING AND 50MG CAPSULE BY MOUTH AT NIGHT)
  7. LYRICA [Suspect]
     Active Substance: PREGABALIN
     Dosage: 50 MG, DAILY EVERY EVENING
     Route: 048
  8. LYRICA [Suspect]
     Active Substance: PREGABALIN
     Dosage: 75 MG, 1X/DAY
     Route: 048
  9. LEVOTHYROXINE [Concomitant]
     Active Substance: LEVOTHYROXINE
     Indication: Hypothyroidism
     Dosage: 112 UG, 1X/DAY
     Route: 048
  10. FML [Concomitant]
     Active Substance: FLUOROMETHOLONE
     Indication: Corneal disorder
     Dosage: UNK
  11. VITAMIN D3 [Concomitant]
     Active Substance: CHOLECALCIFEROL
     Dosage: 800 IU, DAILY
  12. VITAMIN B12 [Concomitant]
     Active Substance: CYANOCOBALAMIN
     Dosage: 500 UG, 1X/DAY
  13. TYLENOL 8HR [Concomitant]
     Active Substance: ACETAMINOPHEN
     Dosage: 650 MG, AS NEEDED
  14. FLONASE SENSIMIST ALLERGY RELIEF [Concomitant]
     Active Substance: FLUTICASONE FUROATE
     Dosage: 27.5 UG, DAILY
     Route: 045
  15. STOOL SOFTENER (DOCUSATE) [Concomitant]
     Active Substance: DOCUSATE
     Dosage: 240 MG, DAILY

REACTIONS (5)
  - Intentional product use issue [Unknown]
  - Blister [Recovered/Resolved]
  - Nasopharyngitis [Not Recovered/Not Resolved]
  - Weight increased [Unknown]
  - Infection [Unknown]

NARRATIVE: CASE EVENT DATE: 20170901
